FAERS Safety Report 19122624 (Version 1)
Quarter: 2021Q2

REPORT INFORMATION
  Report Type: Spontaneous
  Country: JP (occurrence: JP)
  Receive Date: 20210412
  Receipt Date: 20210412
  Transmission Date: 20210717
  Serious: Yes (Other)
  Sender: FDA-Public Use
  Company Number: JP-PBT-000480-00

PATIENT
  Age: 59 Year

DRUGS (4)
  1. TACROLIMUS. [Suspect]
     Active Substance: TACROLIMUS
     Indication: RHEUMATIC DISORDER
     Route: 061
  2. BETAMETHASONE. [Suspect]
     Active Substance: BETAMETHASONE
     Indication: RHEUMATIC DISORDER
     Route: 061
  3. TACROLIMUS. [Suspect]
     Active Substance: TACROLIMUS
     Indication: SCLERITIS
     Dosage: 0.1% TACROLIMUS EYE DROPS 5 TIMES A DAY
     Route: 061
  4. BETAMETHASONE. [Suspect]
     Active Substance: BETAMETHASONE
     Indication: SCLERITIS
     Route: 061

REACTIONS (3)
  - Corneal endotheliitis [Recovered/Resolved]
  - Product use in unapproved indication [Unknown]
  - Iridocyclitis [Recovered/Resolved]
